FAERS Safety Report 4972868-1 (Version None)
Quarter: 2006Q2

REPORT INFORMATION
  Report Type: 
  Country: None (occurrence: None)
  Receive Date: 20060410
  Receipt Date: 20060320
  Transmission Date: 20061013
  Serious: Yes (Hospitalization, Other)
  Sender: FDA-Public Use
  Company Number: US200603005446

PATIENT
  Age: 42 Year
  Sex: Female
  Weight: 115.6 kg

DRUGS (6)
  1. ZYPREXA [Suspect]
     Dosage: 2.5 MG, DAILY (1/D); 5 MG
     Dates: start: 20020214
  2. VENLAFAXINE HCL [Concomitant]
  3. CLONAZEPAM [Concomitant]
  4. VALIUM/NET/ (DIAZEPAM) [Concomitant]
  5. SERTRALINE [Concomitant]
  6. RISPERDAL /SWE/ (RISPERIDONE) [Concomitant]

REACTIONS (19)
  - ANXIETY [None]
  - BACK PAIN [None]
  - BLOOD CHOLESTEROL INCREASED [None]
  - BRONCHITIS [None]
  - DIABETES MELLITUS [None]
  - DIABETES MELLITUS INADEQUATE CONTROL [None]
  - GLYCOSYLATED HAEMOGLOBIN INCREASED [None]
  - HEPATIC STEATOSIS [None]
  - HIGH DENSITY LIPOPROTEIN DECREASED [None]
  - HYPERCHOLESTEROLAEMIA [None]
  - HYPERTENSION [None]
  - INSOMNIA [None]
  - LOW DENSITY LIPOPROTEIN INCREASED [None]
  - METABOLIC SYNDROME [None]
  - OVARIAN CYST [None]
  - PULMONARY OEDEMA [None]
  - SMEAR CERVIX ABNORMAL [None]
  - SUICIDAL IDEATION [None]
  - VAGINAL HAEMORRHAGE [None]
